FAERS Safety Report 9506793 (Version 1)
Quarter: 2013Q3

REPORT INFORMATION
  Report Type: Spontaneous
  Country: US (occurrence: US)
  Receive Date: 20130909
  Receipt Date: 20130909
  Transmission Date: 20140515
  Serious: Yes (Other)
  Sender: FDA-Public Use
  Company Number: US-BIOGENIDEC-2013BI083423

PATIENT
  Age: 55 Year
  Sex: Female

DRUGS (3)
  1. AVONEX [Suspect]
     Indication: MULTIPLE SCLEROSIS
     Route: 030
     Dates: start: 20030201, end: 20080501
  2. AVONEX [Suspect]
     Indication: MULTIPLE SCLEROSIS
     Route: 030
     Dates: start: 20110803, end: 20111007
  3. AVONEX [Suspect]
     Indication: MULTIPLE SCLEROSIS
     Route: 030
     Dates: start: 20130805

REACTIONS (18)
  - Renal failure [Recovered/Resolved]
  - Toothache [Recovered/Resolved]
  - Social avoidant behaviour [Recovered/Resolved]
  - Multiple sclerosis [Recovered/Resolved]
  - Visual impairment [Recovered/Resolved]
  - Stress [Recovered/Resolved]
  - Mobility decreased [Recovered/Resolved]
  - Diabetic neuropathy [Recovered/Resolved]
  - Osteoporosis [Recovered/Resolved]
  - Liver disorder [Recovered/Resolved]
  - Bladder disorder [Recovered/Resolved]
  - Incontinence [Recovered/Resolved]
  - Tremor [Recovered/Resolved]
  - Somnolence [Recovered/Resolved]
  - Chills [Recovered/Resolved]
  - Headache [Recovered/Resolved]
  - Pyrexia [Recovered/Resolved]
  - Dizziness [Recovered/Resolved]
